FAERS Safety Report 5101386-5 (Version None)
Quarter: 2006Q3

REPORT INFORMATION
  Report Type: 
  Country: None (occurrence: None)
  Receive Date: 20060911
  Receipt Date: 20060821
  Transmission Date: 20061208
  Serious: Yes (Death)
  Sender: FDA-Public Use
  Company Number: AU-SANOFI-SYNTHELABO-A01200606711

PATIENT
  Age: 23 Year
  Sex: Male

DRUGS (1)
  1. MYSLEE [Suspect]
     Indication: DRUG ABUSER
     Dosage: UP TO 280 MG PER DAY
     Route: 048

REACTIONS (4)
  - COMPLETED SUICIDE [None]
  - DEPENDENCE [None]
  - INTENTIONAL OVERDOSE [None]
  - NON-CARDIAC CHEST PAIN [None]
